FAERS Safety Report 12828000 (Version 6)
Quarter: 2020Q3

REPORT INFORMATION
  Report Type: Report from Study
  Country: US (occurrence: US)
  Receive Date: 20161007
  Receipt Date: 20170105
  Transmission Date: 20201105
  Serious: Yes (Death, Hospitalization)
  Sender: FDA-Public Use
  Company Number: US-JNJFOC-20160930629

PATIENT
  Age: 79 Year
  Sex: Male

DRUGS (13)
  1. CARFILZOMIB [Suspect]
     Active Substance: CARFILZOMIB
     Indication: PLASMA CELL MYELOMA
     Dosage: 36 MG/M2, UNK, TWICE A WEEKX3
     Route: 042
     Dates: start: 20160512, end: 20160820
  2. DEXAMETHASONE. [Suspect]
     Active Substance: DEXAMETHASONE
     Indication: PLASMA CELL MYELOMA
     Route: 042
     Dates: start: 20160914, end: 20160922
  3. ASPIRIN. [Concomitant]
     Active Substance: ASPIRIN
  4. IBRUTINIB [Suspect]
     Active Substance: IBRUTINIB
     Indication: PLASMA CELL MYELOMA
     Route: 048
     Dates: start: 20160519, end: 20160820
  5. DEXAMETHASONE. [Suspect]
     Active Substance: DEXAMETHASONE
     Indication: PLASMA CELL MYELOMA
     Dosage: 10 MG, TWICE WEEKLY
     Route: 042
     Dates: start: 20160512, end: 20160820
  6. HYDROCORTISONE. [Concomitant]
     Active Substance: HYDROCORTISONE
  7. MORNIFLUMATE [Concomitant]
     Active Substance: MORNIFLUMATE
  8. METRONIDAZOLE. [Concomitant]
     Active Substance: METRONIDAZOLE
  9. ACYCLOVIR. [Concomitant]
     Active Substance: ACYCLOVIR
  10. KETOCONAZOLE. [Concomitant]
     Active Substance: KETOCONAZOLE
  11. IBRUTINIB [Suspect]
     Active Substance: IBRUTINIB
     Indication: PLASMA CELL MYELOMA
     Route: 048
     Dates: start: 20160914, end: 20160922
  12. GLICLAZIDE [Concomitant]
     Active Substance: GLICLAZIDE
  13. ATORVASTATIN [Concomitant]
     Active Substance: ATORVASTATIN

REACTIONS (2)
  - Dyspnoea [Not Recovered/Not Resolved]
  - Gastric haemorrhage [Fatal]

NARRATIVE: CASE EVENT DATE: 20160921
